FAERS Safety Report 9587713 (Version 1)
Quarter: 2013Q4

REPORT INFORMATION
  Report Type: Spontaneous
  Country: US (occurrence: US)
  Receive Date: 20131003
  Receipt Date: 20131003
  Transmission Date: 20140711
  Serious: No
  Sender: FDA-Public Use
  Company Number: US-009507513-1309USA011123

PATIENT
  Age: 34 Year
  Sex: Male

DRUGS (2)
  1. PEGINTRON [Suspect]
     Indication: HEPATITIS C
     Dosage: 150 MICROGRAM, QW
     Dates: start: 20130814, end: 20130918
  2. REBETOL [Suspect]
     Indication: HEPATITIS C
     Dosage: 3 TABLETS, BID
     Route: 048
     Dates: start: 20130814, end: 20130918

REACTIONS (1)
  - Drug ineffective [Unknown]
